FAERS Safety Report 7069063-1 (Version None)
Quarter: 2010Q4

REPORT INFORMATION
  Report Type: 
  Country: None (occurrence: None)
  Receive Date: 20101028
  Receipt Date: 20101019
  Transmission Date: 20110411
  Serious: Yes (Death, Other)
  Sender: FDA-Public Use
  Company Number: US-CELGENEUS-163-21880-10081654

PATIENT
  Sex: Male

DRUGS (5)
  1. REVLIMID [Suspect]
     Indication: MULTIPLE MYELOMA
     Route: 048
     Dates: start: 20100708, end: 20100710
  2. DECADRON [Concomitant]
     Indication: MULTIPLE MYELOMA
     Route: 051
     Dates: start: 20100706, end: 20100101
  3. VELCADE [Concomitant]
     Indication: MULTIPLE MYELOMA
     Route: 051
     Dates: start: 20100708, end: 20100708
  4. ASPIRIN [Concomitant]
     Route: 048
     Dates: start: 20100624, end: 20100710
  5. ACYCLOVIR SODIUM [Concomitant]
     Route: 048
     Dates: start: 20100624, end: 20100710

REACTIONS (2)
  - LUNG INFILTRATION [None]
  - NEUTROPENIC SEPSIS [None]
